FAERS Safety Report 16116413 (Version 4)
Quarter: 2019Q2

REPORT INFORMATION
  Report Type: Report from Study
  Country: US (occurrence: US)
  Receive Date: 20190326
  Receipt Date: 20190415
  Transmission Date: 20190711
  Serious: Yes (Other)
  Sender: FDA-Public Use
  Company Number: US-PFIZER INC-2019125677

PATIENT
  Age: 79 Year
  Sex: Male

DRUGS (8)
  1. LIPITOR [Suspect]
     Active Substance: ATORVASTATIN CALCIUM
     Indication: BLOOD CHOLESTEROL INCREASED
     Dosage: 1 DF, 1X/DAY
     Route: 065
     Dates: end: 20190225
  2. RITUXAN [Concomitant]
     Active Substance: RITUXIMAB
     Dosage: UNK
     Route: 042
  3. ZOMETA [Concomitant]
     Active Substance: ZOLEDRONIC ACID
     Dosage: UNK
  4. BENADRYL [Suspect]
     Active Substance: DIPHENHYDRAMINE HYDROCHLORIDE
     Indication: PREMEDICATION
     Dosage: UNK
     Route: 065
     Dates: start: 20190313, end: 20190313
  5. ELIQUIS [Suspect]
     Active Substance: APIXABAN
     Dosage: UNK
     Dates: start: 201811
  6. IDELALISIB [Interacting]
     Active Substance: IDELALISIB
     Dosage: 100 MG, 2X/DAY
     Route: 048
     Dates: start: 20190306
  7. IDELALISIB [Interacting]
     Active Substance: IDELALISIB
     Indication: B-CELL LYMPHOMA
     Dosage: 150 MG, 2X/DAY
     Route: 048
     Dates: start: 20181211, end: 20190206
  8. IMMUNOGLOBULIN HUMAN NORMAL [Concomitant]
     Active Substance: HUMAN IMMUNOGLOBULIN G
     Dosage: UNK

REACTIONS (12)
  - Back pain [Recovered/Resolved]
  - Fatigue [Not Recovered/Not Resolved]
  - Nocturia [Not Recovered/Not Resolved]
  - Labelled drug-drug interaction medication error [Recovered/Resolved]
  - Somnolence [Not Recovered/Not Resolved]
  - Incision site pain [Not Recovered/Not Resolved]
  - Hyperphagia [Not Recovered/Not Resolved]
  - Diarrhoea [Unknown]
  - Hepatic enzyme abnormal [Recovered/Resolved]
  - Abdominal pain [Recovered/Resolved]
  - Hepatic enzyme increased [Unknown]
  - Middle insomnia [Not Recovered/Not Resolved]

NARRATIVE: CASE EVENT DATE: 20181022
